FAERS Safety Report 9374785 (Version 1)
Quarter: 2013Q2

REPORT INFORMATION
  Report Type: Spontaneous
  Country: CH (occurrence: CH)
  Receive Date: 20130628
  Receipt Date: 20130628
  Transmission Date: 20140414
  Serious: Yes (Other)
  Sender: FDA-Public Use
  Company Number: CH-JNJFOC-20130618139

PATIENT
  Sex: 0

DRUGS (3)
  1. DOXORUBICIN [Suspect]
     Indication: HER-2 POSITIVE BREAST CANCER
     Dosage: EVERY 2 OR 3 OR 4 WEEKS FOR 4 CYCLES
     Route: 042
  2. CYCLOPHOSPHAMIDE [Suspect]
     Indication: HER-2 POSITIVE BREAST CANCER
     Dosage: IN AC GROUP, EVERY 2 OR 3 OR 4 WEEKS FOR 4 CYCLES. IN FEC EVERY 3 OR 4 CYCLES
     Route: 065
  3. TRASTUZUMAB [Suspect]
     Indication: HER-2 POSITIVE BREAST CANCER
     Dosage: UPTO 17 CYCLES
     Route: 042

REACTIONS (1)
  - Tricuspid valve incompetence [Unknown]
